FAERS Safety Report 19076979 (Version 2)
Quarter: 2021Q2

REPORT INFORMATION
  Report Type: Report from Study
  Country: US (occurrence: US)
  Receive Date: 20210331
  Receipt Date: 20210520
  Transmission Date: 20210717
  Serious: Yes (Hospitalization, Other)
  Sender: FDA-Public Use
  Company Number: US-SA-2021SA106846

PATIENT
  Age: 68 Year
  Sex: Female

DRUGS (2)
  1. LASIX [Concomitant]
     Active Substance: FUROSEMIDE
     Dosage: UNK
  2. SARILUMAB [Suspect]
     Active Substance: SARILUMAB
     Indication: RHEUMATOID ARTHRITIS
     Dosage: 200 MG, QOW
     Route: 058
     Dates: start: 20201104

REACTIONS (3)
  - Upper respiratory tract infection [Not Recovered/Not Resolved]
  - Asthma [Not Recovered/Not Resolved]
  - Rheumatoid arthritis [Not Recovered/Not Resolved]

NARRATIVE: CASE EVENT DATE: 20210307
